FAERS Safety Report 21557620 (Version 1)
Quarter: 2022Q4

REPORT INFORMATION
  Report Type: Spontaneous
  Country: US (occurrence: US)
  Receive Date: 20221106
  Receipt Date: 20221106
  Transmission Date: 20230112
  Serious: No
  Sender: FDA-Public Use
  Company Number: US-ELI_LILLY_AND_COMPANY-US202211002107

PATIENT
  Sex: Male

DRUGS (4)
  1. INSULIN LISPRO [Suspect]
     Active Substance: INSULIN LISPRO
     Indication: Product used for unknown indication
     Dosage: UNK UNK, PRN
     Route: 065
     Dates: start: 2018
  2. INSULIN LISPRO [Suspect]
     Active Substance: INSULIN LISPRO
     Indication: Product used for unknown indication
     Dosage: UNK UNK, PRN
     Route: 065
     Dates: start: 2018
  3. INSULIN LISPRO [Suspect]
     Active Substance: INSULIN LISPRO
     Dosage: UNK UNK, PRN
     Route: 065
  4. INSULIN LISPRO [Suspect]
     Active Substance: INSULIN LISPRO
     Dosage: UNK UNK, PRN
     Route: 065

REACTIONS (2)
  - Diabetes mellitus inadequate control [Unknown]
  - Weight increased [Unknown]
